FAERS Safety Report 7917317-6 (Version None)
Quarter: 2011Q4

REPORT INFORMATION
  Report Type: 
  Country: None (occurrence: None)
  Receive Date: 20111116
  Receipt Date: 20111107
  Transmission Date: 20120403
  Serious: Yes (Other)
  Sender: FDA-Public Use
  Company Number: PHEH2011US07590

PATIENT
  Age: 55 Year
  Sex: Female
  Weight: 54.422 kg

DRUGS (5)
  1. VITAMIN D [Concomitant]
  2. GLEEVEC [Suspect]
     Indication: PERITONEAL MESOTHELIOMA MALIGNANT
     Dosage: 400 MG, DAILY
     Route: 048
  3. CALCIUM [Concomitant]
  4. TURMERIC [Concomitant]
  5. QUERCETOL C [Concomitant]

REACTIONS (4)
  - CYSTITIS [None]
  - BLADDER PAIN [None]
  - DYSURIA [None]
  - MICTURITION URGENCY [None]
